FAERS Safety Report 5085538-9 (Version None)
Quarter: 2006Q3

REPORT INFORMATION
  Report Type: 
  Country: None (occurrence: None)
  Receive Date: 20060731
  Receipt Date: 20060209
  Transmission Date: 20061208
  Serious: Yes (Hospitalization)
  Sender: FDA-Public Use
  Company Number: 200513027BWH

PATIENT
  Age: 29 Year
  Sex: Female
  Weight: 61.2356 kg

DRUGS (4)
  1. AVELOX [Suspect]
     Indication: BRONCHITIS
     Dosage: 400 MG, QD, ORAL
     Route: 048
     Dates: start: 20051124, end: 20051126
  2. AVELOX [Suspect]
     Indication: EAR INFECTION
     Dosage: 400 MG, QD, ORAL
     Route: 048
     Dates: start: 20051124, end: 20051126
  3. CILEST [Concomitant]
  4. TYLENOL W/ CODEINE [Concomitant]

REACTIONS (13)
  - ANAPHYLACTIC REACTION [None]
  - DIZZINESS [None]
  - DYSPHAGIA [None]
  - DYSPNOEA [None]
  - FATIGUE [None]
  - MALAISE [None]
  - MUSCLE SPASMS [None]
  - PAIN [None]
  - PANIC ATTACK [None]
  - RASH [None]
  - SWOLLEN TONGUE [None]
  - TREMOR [None]
  - URTICARIA GENERALISED [None]
